FAERS Safety Report 10530634 (Version 1)
Quarter: 2014Q4

REPORT INFORMATION
  Report Type: Spontaneous
  Country: US (occurrence: None)
  Receive Date: 20141020
  Receipt Date: 20141020
  Transmission Date: 20150528
  Serious: Yes (Other)
  Sender: FDA-Public Use
  Company Number: None

PATIENT
  Age: 80 Year
  Sex: Female
  Weight: 57.15 kg

DRUGS (1)
  1. DIOVAN [Suspect]
     Active Substance: VALSARTAN
     Indication: HYPERTENSION
     Dosage: 80 MG. /DAY IN AM  ONCE DAILY  TAKEN BY MOUTH
     Route: 048
     Dates: start: 20051001, end: 20141010

REACTIONS (3)
  - Malaise [None]
  - Product quality issue [None]
  - Feeling abnormal [None]

NARRATIVE: CASE EVENT DATE: 20141007
